FAERS Safety Report 5118385-X (Version None)
Quarter: 2006Q3

REPORT INFORMATION
  Report Type: 
  Country: None (occurrence: None)
  Receive Date: 20060926
  Receipt Date: 20060912
  Transmission Date: 20061208
  Serious: Yes (Other)
  Sender: FDA-Public Use
  Company Number: CA200608004162

PATIENT
  Age: 47 Year
  Sex: Male

DRUGS (2)
  1. CIALIS [Suspect]
     Indication: ERECTILE DYSFUNCTION
     Dosage: 20 MG, ORAL
     Route: 048
     Dates: start: 20050801, end: 20060816
  2. PERCOCET [Concomitant]

REACTIONS (2)
  - ABNORMAL SENSATION IN EYE [None]
  - VISION BLURRED [None]
